FAERS Safety Report 16796621 (Version 1)
Quarter: 2019Q3

REPORT INFORMATION
  Report Type: Spontaneous
  Country: US (occurrence: US)
  Receive Date: 20190911
  Receipt Date: 20190911
  Transmission Date: 20191005
  Serious: No
  Sender: FDA-Public Use
  Company Number: US-JNJFOC-20190901249

PATIENT
  Sex: Female
  Weight: 58.11 kg

DRUGS (5)
  1. RISPERIDONE. [Suspect]
     Active Substance: RISPERIDONE
     Indication: CONFUSIONAL STATE
     Route: 065
  2. RISPERIDONE. [Suspect]
     Active Substance: RISPERIDONE
     Indication: AMNESIA
  3. XANAX [Concomitant]
     Active Substance: ALPRAZOLAM
     Indication: AGITATION
     Route: 065
  4. HEPARIN [Concomitant]
     Active Substance: HEPARIN SODIUM
     Indication: PRODUCT USED FOR UNKNOWN INDICATION
     Route: 065
  5. OXYCODONE [Concomitant]
     Active Substance: OXYCODONE
     Indication: PRODUCT USED FOR UNKNOWN INDICATION
     Route: 065

REACTIONS (11)
  - Depression [Unknown]
  - Sleep disorder [Unknown]
  - Headache [Unknown]
  - Tremor [Unknown]
  - Muscle disorder [Unknown]
  - Abnormal behaviour [Unknown]
  - Weight decreased [Unknown]
  - White blood cell count decreased [Unknown]
  - Asthenia [Unknown]
  - Abdominal pain upper [Unknown]
  - Somnolence [Unknown]
